FAERS Safety Report 12397816 (Version 1)
Quarter: 2016Q2

REPORT INFORMATION
  Report Type: Spontaneous
  Country: US (occurrence: None)
  Receive Date: 20160523
  Receipt Date: 20160523
  Transmission Date: 20160815
  Serious: No
  Sender: FDA-Public Use
  Company Number: None

PATIENT
  Age: 50 Year
  Sex: Female

DRUGS (17)
  1. GABAPENTIN. [Suspect]
     Active Substance: GABAPENTIN
     Indication: NEUROPATHY PERIPHERAL
     Dosage: 200 MG EVERY 12 HOURS PO
     Route: 048
     Dates: start: 20160308, end: 20160315
  2. LORATADINE. [Concomitant]
     Active Substance: LORATADINE
  3. CLOPIDOGREL [Concomitant]
     Active Substance: CLOPIDOGREL BISULFATE
  4. LANSOPRAZOLE. [Concomitant]
     Active Substance: LANSOPRAZOLE
  5. HEPARIN [Concomitant]
     Active Substance: HEPARIN SODIUM
  6. WARFARIN [Concomitant]
     Active Substance: WARFARIN
  7. AMLODIPINE [Concomitant]
     Active Substance: AMLODIPINE BESYLATE
  8. ASPIRIN. [Concomitant]
     Active Substance: ASPIRIN
  9. CARVEDILOL. [Concomitant]
     Active Substance: CARVEDILOL
  10. CLONIDINE. [Concomitant]
     Active Substance: CLONIDINE
  11. LACTOBACILLUS [Concomitant]
     Active Substance: LACTOBACILLUS ACIDOPHILUS
  12. GRANULES 2-4MM [Concomitant]
     Active Substance: UNSPECIFIED INGREDIENT
  13. SEVELAMER [Concomitant]
     Active Substance: SEVELAMER
  14. IRBESARTAN. [Concomitant]
     Active Substance: IRBESARTAN
  15. NEPHROCAPS [Concomitant]
     Active Substance: ASCORBIC ACID\BIOTIN\CYANOCOBALAMIN\FOLIC ACID\NIACIN\PANTOTHENIC ACID\PYRIDOXINE\RIBOFLAVIN\THIAMINE
  16. HYDROMORPHONE [Concomitant]
     Active Substance: HYDROMORPHONE
  17. INSULIN [Concomitant]
     Active Substance: INSULIN NOS

REACTIONS (2)
  - Muscle twitching [None]
  - Tremor [None]

NARRATIVE: CASE EVENT DATE: 20160316
